FAERS Safety Report 21484875 (Version 1)
Quarter: 2022Q4

REPORT INFORMATION
  Report Type: Spontaneous
  Country: US (occurrence: US)
  Receive Date: 20221020
  Receipt Date: 20221020
  Transmission Date: 20230112
  Serious: No
  Sender: FDA-Public Use
  Company Number: US-CELLTRION INC.-2022US010341

PATIENT

DRUGS (12)
  1. INFLECTRA [Suspect]
     Active Substance: INFLIXIMAB-DYYB
     Indication: Crohn^s disease
     Dosage: INFUSION; ADMINSTIER 1000MG EVERY 6 WEEKS 10MG /KG INFUSRED ABOUT 1000MG , ONE INUDSION 1,000MG VIAL
     Route: 065
     Dates: end: 20220414
  2. INFLECTRA [Suspect]
     Active Substance: INFLIXIMAB-DYYB
     Indication: Crohn^s disease
     Dosage: 1000 MG ADMINISTER 1000MG EVERY 6 WEEKS 10MG/KG INFUSED ABOUT 1000MG, ONE INFUSION 1,000MG VIAL
     Route: 065
     Dates: end: 20220414
  3. INFLECTRA [Suspect]
     Active Substance: INFLIXIMAB-DYYB
     Dosage: UNK
  4. INFLECTRA [Suspect]
     Active Substance: INFLIXIMAB-DYYB
     Dosage: DIRECTIONS: (BLANK) FREQUENCY: Q 6 QUANTITY: 9 VIALS REFILLS:11
  5. ENTYVIO [Concomitant]
     Active Substance: VEDOLIZUMAB
  6. REMICADE [Concomitant]
     Active Substance: INFLIXIMAB
  7. CYMBALTA [Concomitant]
     Active Substance: DULOXETINE HYDROCHLORIDE
     Dosage: 60 MG
  8. DIPHENHYDRAMINE HYDROCHLORIDE [Concomitant]
     Active Substance: DIPHENHYDRAMINE HYDROCHLORIDE
     Dosage: 50 MG
  9. METOPROLOL [Concomitant]
     Active Substance: METOPROLOL
     Dosage: 50 MG, ONE TIME A DAY, TABLET
  10. BUSPAR [Concomitant]
     Active Substance: BUSPIRONE HYDROCHLORIDE
     Dosage: 15 MG, TWICE A DAY, TABLET
  11. ATORVASTATIN [Concomitant]
     Active Substance: ATORVASTATIN
     Dosage: ONCE A DAY(LOW DOSE) TABLET
  12. INSULIN NOS [Concomitant]
     Active Substance: INSULIN NOS
     Dosage: AS NEEDED, INJECTABLE

REACTIONS (5)
  - Condition aggravated [Unknown]
  - Insurance issue [Unknown]
  - Product dose omission issue [Unknown]
  - Overdose [Unknown]
  - Product selection error [Unknown]

NARRATIVE: CASE EVENT DATE: 20220414
